FAERS Safety Report 10085934 (Version 5)
Quarter: 2015Q3

REPORT INFORMATION
  Report Type: Spontaneous
  Country: US (occurrence: None)
  Receive Date: 20140416
  Receipt Date: 20150903
  Transmission Date: 20151125
  Serious: Yes (Other)
  Sender: FDA-Public Use
  Company Number: ADR-2013-01504

PATIENT
  Sex: Female

DRUGS (4)
  1. MORPHINE [Suspect]
     Active Substance: MORPHINE
  2. BUPIVACAINE [Suspect]
     Active Substance: BUPIVACAINE
  3. FENTANYL; SEE ALSO B5 [Suspect]
     Active Substance: FENTANYL
  4. COMPOUNDED BACLOFEN INTRATHECAL [Suspect]
     Active Substance: BACLOFEN
     Indication: PAIN

REACTIONS (17)
  - Pain [None]
  - Neuralgia [None]
  - Implant site scar [None]
  - Constipation [None]
  - Implant site pain [None]
  - Weight decreased [None]
  - Dysuria [None]
  - Altered state of consciousness [None]
  - Therapeutic response unexpected [None]
  - Unevaluable event [None]
  - No therapeutic response [None]
  - Contusion [None]
  - Memory impairment [None]
  - Discomfort [None]
  - Medical device discomfort [None]
  - Drug hypersensitivity [None]
  - Nerve injury [None]
